FAERS Safety Report 16278452 (Version 8)
Quarter: 2020Q1

REPORT INFORMATION
  Report Type: Spontaneous
  Country: MX (occurrence: MX)
  Receive Date: 20190506
  Receipt Date: 20200320
  Transmission Date: 20200409
  Serious: Yes (Other)
  Sender: FDA-Public Use
  Company Number: MX-ASTRAZENECA-2019SE68717

PATIENT
  Age: 509 Month
  Sex: Female
  Weight: 66 kg

DRUGS (11)
  1. LYNPARZA [Suspect]
     Active Substance: OLAPARIB
     Indication: BREAST CANCER FEMALE
     Route: 048
     Dates: start: 201901
  2. LYNPARZA [Suspect]
     Active Substance: OLAPARIB
     Indication: BREAST CANCER FEMALE
     Route: 048
     Dates: start: 20190523
  3. LYNPARZA [Suspect]
     Active Substance: OLAPARIB
     Indication: BREAST CANCER FEMALE
     Route: 048
     Dates: start: 20181222
  4. LYNPARZA [Suspect]
     Active Substance: OLAPARIB
     Indication: BREAST CANCER FEMALE
     Route: 048
  5. ATEMPERATOR [Concomitant]
     Indication: SEIZURE
     Route: 048
     Dates: start: 20181208
  6. NATURALAG [Concomitant]
     Indication: DRY EYE
     Dosage: UNKNOWN
     Route: 047
     Dates: start: 20180101
  7. LYNPARZA [Suspect]
     Active Substance: OLAPARIB
     Indication: BREAST CANCER FEMALE
     Route: 048
     Dates: start: 20190301
  8. NATURALAG [Concomitant]
     Indication: DRY EYE
     Dosage: 2 DROPS AS REQUIRED UNKNOWN
     Route: 047
     Dates: start: 20190501
  9. FENITOINA [Concomitant]
     Active Substance: PHENYTOIN
     Dosage: UNKNOWN
     Route: 065
     Dates: start: 20181222, end: 20181229
  10. LYNPARZA [Suspect]
     Active Substance: OLAPARIB
     Indication: BREAST CANCER FEMALE
     Route: 048
     Dates: start: 201712
  11. LYNPARZA [Suspect]
     Active Substance: OLAPARIB
     Indication: BREAST CANCER FEMALE
     Route: 048
     Dates: start: 20190523

REACTIONS (22)
  - Headache [Recovered/Resolved]
  - Contraindicated product administered [Recovered/Resolved]
  - Dry skin [Unknown]
  - Colitis [Recovered/Resolved]
  - Vaginal haemorrhage [Unknown]
  - Dry eye [Not Recovered/Not Resolved]
  - Vulvovaginal dryness [Recovered/Resolved]
  - Weight increased [Unknown]
  - Influenza [Recovering/Resolving]
  - Pruritus [Not Recovered/Not Resolved]
  - Urinary tract infection [Recovered/Resolved]
  - Renal disorder [Not Recovered/Not Resolved]
  - Insomnia [Recovering/Resolving]
  - Vaginal infection [Unknown]
  - Dry mouth [Not Recovered/Not Resolved]
  - Gastritis [Recovered/Resolved]
  - Musculoskeletal chest pain [Recovered/Resolved]
  - Pain in extremity [Recovering/Resolving]
  - Eye pruritus [Not Recovered/Not Resolved]
  - Fatigue [Not Recovered/Not Resolved]
  - Abdominal discomfort [Recovered/Resolved]
  - Weight decreased [Recovered/Resolved]

NARRATIVE: CASE EVENT DATE: 201808
